FAERS Safety Report 5355321-5 (Version None)
Quarter: 2007Q2

REPORT INFORMATION
  Report Type: 
  Country: None (occurrence: None)
  Receive Date: 20070601
  Receipt Date: 20070329
  Transmission Date: 20071010
  Serious: No
  Sender: FDA-Public Use
  Company Number: S07-USA-01395-01

PATIENT
  Age: 60 Year
  Sex: Female

DRUGS (10)
  1. CAMPRAL [Suspect]
     Indication: ALCOHOL PROBLEM
     Dosage: 666 MG TID PO
     Route: 048
     Dates: start: 20070316, end: 20070325
  2. CAMPRAL [Suspect]
     Indication: ALCOHOL PROBLEM
     Dosage: 333 MD TID PO
     Route: 048
     Dates: start: 20070326
  3. LORAZEPAM [Concomitant]
  4. HYDROCHLOROTHIAZIDE [Concomitant]
  5. ADVAIR (FLUTICASONE) [Concomitant]
  6. ALBUTEROL [Concomitant]
  7. FOSAMAX [Concomitant]
  8. ASPIRIN [Concomitant]
  9. MULTIVITAMIN [Concomitant]
  10. CALCIUM CHLORIDE [Concomitant]

REACTIONS (5)
  - DECREASED APPETITE [None]
  - DIARRHOEA [None]
  - HEADACHE [None]
  - MICTURITION FREQUENCY DECREASED [None]
  - MUSCULOSKELETAL STIFFNESS [None]
